FAERS Safety Report 16880113 (Version 5)
Quarter: 2021Q2

REPORT INFORMATION
  Report Type: Report from Study
  Country: US (occurrence: US)
  Receive Date: 20191003
  Receipt Date: 20210505
  Transmission Date: 20210716
  Serious: Yes (Life-Threatening, Other)
  Sender: FDA-Public Use
  Company Number: US-SHIRE-US201932487

PATIENT
  Age: 21 Year
  Sex: Female

DRUGS (6)
  1. PARATHYROID HORMONE [Suspect]
     Active Substance: PARATHYROID HORMONE
     Dosage: 17.5 MICROGRAM,1X/DAY
     Route: 058
     Dates: start: 20180406
  2. PARATHYROID HORMONE [Suspect]
     Active Substance: PARATHYROID HORMONE
     Indication: HYPOPARATHYROIDISM
     Dosage: 19.75 MICROGRAM, 1X/DAY
     Route: 058
     Dates: start: 20180406
  3. PARATHYROID HORMONE [Suspect]
     Active Substance: PARATHYROID HORMONE
     Indication: HYPOPARATHYROIDISM
     Dosage: 19.75 MICROGRAM, 1X/DAY
     Route: 058
     Dates: start: 20180406
  4. PARATHYROID HORMONE [Suspect]
     Active Substance: PARATHYROID HORMONE
     Dosage: 17.5 MICROGRAM,1X/DAY
     Route: 058
     Dates: start: 20180406
  5. PARATHYROID HORMONE [Suspect]
     Active Substance: PARATHYROID HORMONE
     Indication: HYPOPARATHYROIDISM
     Dosage: 19.75 MICROGRAM, 1X/DAY
     Route: 058
     Dates: start: 20180406
  6. PARATHYROID HORMONE [Suspect]
     Active Substance: PARATHYROID HORMONE
     Dosage: 17.5 MICROGRAM,1X/DAY
     Route: 058
     Dates: start: 20180406

REACTIONS (4)
  - Wrong technique in product usage process [Unknown]
  - Burns second degree [Not Recovered/Not Resolved]
  - Recalled product [Unknown]
  - Hypocalcaemia [Unknown]

NARRATIVE: CASE EVENT DATE: 20210419
